FAERS Safety Report 14265885 (Version 1)
Quarter: 2017Q4

REPORT INFORMATION
  Report Type: Report from Study
  Country: US (occurrence: US)
  Receive Date: 20171209
  Receipt Date: 20171209
  Transmission Date: 20180321
  Serious: Yes (Other)
  Sender: FDA-Public Use
  Company Number: US-ROCHE-1322488

PATIENT
  Age: 12 Year
  Sex: Male
  Weight: 51.26 kg

DRUGS (11)
  1. CLARITIN (UNITED STATES) [Concomitant]
  2. NUTROPIN AQ [Suspect]
     Active Substance: SOMATROPIN
     Route: 058
  3. NUTROPIN AQ [Suspect]
     Active Substance: SOMATROPIN
     Route: 058
  4. NUTROPIN AQ [Suspect]
     Active Substance: SOMATROPIN
     Route: 058
     Dates: start: 201212
  5. AQUAPHOR (UNITED STATES) [Concomitant]
     Indication: ECZEMA
     Dosage: APPLY SPARINGLY UP TO 2 WEEKS AT A TIME
     Route: 061
  6. TRIAMCINOLONE [Concomitant]
     Active Substance: TRIAMCINOLONE
     Indication: ECZEMA
     Dosage: APPLY SPARINGLY UP TO 2 WEEKS AT A TIME
     Route: 061
  7. TYLENOL [Concomitant]
     Active Substance: ACETAMINOPHEN
     Route: 048
  8. VERAMYST [Concomitant]
     Active Substance: FLUTICASONE FUROATE
  9. ALLEGRA [Concomitant]
     Active Substance: FEXOFENADINE HYDROCHLORIDE
     Route: 048
  10. NUTROPIN AQ [Suspect]
     Active Substance: SOMATROPIN
     Indication: GROWTH HORMONE DEFICIENCY
     Dosage: 0.271 MG/KG PER WEEK
     Route: 058
     Dates: start: 20121220
  11. EPIPEN [Concomitant]
     Active Substance: EPINEPHRINE
     Indication: ANAPHYLACTIC REACTION
     Route: 030

REACTIONS (7)
  - Precocious puberty [Unknown]
  - Blood pressure systolic decreased [Unknown]
  - Type 1 diabetes mellitus [Unknown]
  - Rhinitis allergic [Unknown]
  - Dermatitis atopic [Unknown]
  - Weight increased [Unknown]
  - General physical health deterioration [Unknown]

NARRATIVE: CASE EVENT DATE: 20130123
